FAERS Safety Report 9160273 (Version 2)
Quarter: 2013Q2

REPORT INFORMATION
  Report Type: Report from Study
  Country: PL (occurrence: PL)
  Receive Date: 20130313
  Receipt Date: 20130513
  Transmission Date: 20140414
  Serious: Yes (Other)
  Sender: FDA-Public Use
  Company Number: PL-ROCHE-1201400

PATIENT
  Age: 76 Year
  Sex: Female
  Weight: 51 kg

DRUGS (5)
  1. MABTHERA [Suspect]
     Indication: CHRONIC LYMPHOCYTIC LEUKAEMIA
     Route: 042
     Dates: start: 20130307, end: 20130307
  2. MABTHERA [Suspect]
     Route: 065
  3. ENARENAL [Concomitant]
     Indication: HYPERTENSION
     Route: 048
  4. MILURIT [Concomitant]
     Indication: BLOOD URIC ACID INCREASED
     Route: 048
  5. HEVIRAN [Concomitant]
     Route: 048

REACTIONS (6)
  - Blood pressure increased [Recovered/Resolved]
  - Convulsion [Unknown]
  - Vomiting [Unknown]
  - Bronchospasm [Recovered/Resolved]
  - Unevaluable event [Recovered/Resolved]
  - Body temperature increased [Recovered/Resolved]
